FAERS Safety Report 23925612 (Version 1)
Quarter: 2024Q2

REPORT INFORMATION
  Report Type: Spontaneous
  Country: US (occurrence: US)
  Receive Date: 20240531
  Receipt Date: 20240531
  Transmission Date: 20240716
  Serious: Yes (Other)
  Sender: FDA-Public Use
  Company Number: US-DRL-USA-LIT/USA/24/0007848

PATIENT
  Age: 68 Year
  Sex: Male

DRUGS (6)
  1. NORTRIPTYLINE [Suspect]
     Active Substance: NORTRIPTYLINE
     Indication: Headache
  2. NORTRIPTYLINE [Suspect]
     Active Substance: NORTRIPTYLINE
     Indication: Idiopathic intracranial hypertension
  3. ACETAZOLAMIDE [Concomitant]
     Active Substance: ACETAZOLAMIDE
     Indication: Headache
  4. ACETAZOLAMIDE [Concomitant]
     Active Substance: ACETAZOLAMIDE
     Indication: Idiopathic intracranial hypertension
  5. ZONISAMIDE [Concomitant]
     Active Substance: ZONISAMIDE
     Indication: Headache
  6. ZONISAMIDE [Concomitant]
     Active Substance: ZONISAMIDE
     Indication: Idiopathic intracranial hypertension

REACTIONS (1)
  - Drug ineffective for unapproved indication [Unknown]
